FAERS Safety Report 17206663 (Version 5)
Quarter: 2021Q4

REPORT INFORMATION
  Report Type: Spontaneous
  Country: CA (occurrence: CA)
  Receive Date: 20191227
  Receipt Date: 20211111
  Transmission Date: 20220303
  Serious: Yes (Other)
  Sender: FDA-Public Use
  Company Number: CA-AUROBINDO-AUR-APL-2017-28665

PATIENT
  Age: 94 Year
  Sex: Female

DRUGS (34)
  1. DULOXETINE [Suspect]
     Active Substance: DULOXETINE
     Indication: Back pain
     Dosage: 30 MILLIGRAM, ONCE A DAY
     Route: 048
  2. DULOXETINE [Suspect]
     Active Substance: DULOXETINE
     Indication: Spinal stenosis
     Dosage: 1 DOSAGE FORM, ONCE A DAY
     Route: 048
  3. DULOXETINE [Suspect]
     Active Substance: DULOXETINE
     Indication: Neuralgia
  4. DULOXETINE [Suspect]
     Active Substance: DULOXETINE
     Indication: Pain in extremity
  5. GABAPENTIN [Suspect]
     Active Substance: GABAPENTIN
     Indication: Back pain
     Dosage: UNK
     Route: 065
  6. GABAPENTIN [Suspect]
     Active Substance: GABAPENTIN
     Indication: Pain
  7. GABAPENTIN [Suspect]
     Active Substance: GABAPENTIN
     Indication: Spinal stenosis
  8. GABAPENTIN [Suspect]
     Active Substance: GABAPENTIN
     Indication: Pain in extremity
  9. GABAPENTIN [Suspect]
     Active Substance: GABAPENTIN
     Indication: Neuralgia
  10. PREGABALIN [Suspect]
     Active Substance: PREGABALIN
     Indication: Back pain
     Dosage: UNK
     Route: 065
  11. PREGABALIN [Suspect]
     Active Substance: PREGABALIN
     Indication: Spinal stenosis
  12. PREGABALIN [Suspect]
     Active Substance: PREGABALIN
     Indication: Neuralgia
  13. PREGABALIN [Suspect]
     Active Substance: PREGABALIN
     Indication: Pain in extremity
  14. QUETIAPINE [Suspect]
     Active Substance: QUETIAPINE
     Indication: Screaming
     Dosage: 12.5 MG, MORNING
     Route: 048
  15. QUETIAPINE [Suspect]
     Active Substance: QUETIAPINE
     Indication: Pain
     Dosage: 25 MILLIGRAM, ONCE A DAY AT NIGHT
     Route: 048
  16. QUETIAPINE [Suspect]
     Active Substance: QUETIAPINE
     Dosage: UNK
     Route: 048
  17. QUETIAPINE [Suspect]
     Active Substance: QUETIAPINE
     Dosage: 37.5 MILLIGRAM
     Route: 048
  18. QUETIAPINE [Suspect]
     Active Substance: QUETIAPINE
     Dosage: 12.5 MILLIGRAM, ONCE A DAY
     Route: 048
  19. HYDROMORPHONE [Suspect]
     Active Substance: HYDROMORPHONE
     Indication: Back pain
     Dosage: 6 MILLIGRAM, TWO TIMES A DAY
     Route: 065
  20. HYDROMORPHONE [Suspect]
     Active Substance: HYDROMORPHONE
     Indication: Spinal stenosis
     Dosage: 1 MILLIGRAM, EVERY FOUR HOUR
     Route: 048
  21. HYDROMORPHONE [Suspect]
     Active Substance: HYDROMORPHONE
     Dosage: 1 MILLIGRAM, FOUR TIMES/DAY
     Route: 048
  22. HYDROMORPHONE [Suspect]
     Active Substance: HYDROMORPHONE
     Dosage: 4 DOSAGE FORM, ONCE A DAY
     Route: 048
  23. HYDROMORPHONE [Suspect]
     Active Substance: HYDROMORPHONE
     Indication: Pain
     Dosage: 6 MILLIGRAM, TWO TIMES A DAY
     Route: 048
  24. CODEINE [Suspect]
     Active Substance: CODEINE
     Indication: Pain in extremity
     Dosage: UNK
     Route: 065
  25. CODEINE [Suspect]
     Active Substance: CODEINE
     Indication: Neuralgia
  26. CODEINE [Suspect]
     Active Substance: CODEINE
     Indication: Neck pain
  27. ACETAMINOPHEN\BUTALBITAL [Suspect]
     Active Substance: ACETAMINOPHEN\BUTALBITAL
     Indication: Pain in extremity
     Dosage: 1000 MILLIGRAM, 3 TIMES A DAY
     Route: 048
  28. ACETAMINOPHEN\BUTALBITAL [Suspect]
     Active Substance: ACETAMINOPHEN\BUTALBITAL
     Indication: Neuralgia
  29. ACETAMINOPHEN\BUTALBITAL [Suspect]
     Active Substance: ACETAMINOPHEN\BUTALBITAL
     Indication: Neck pain
  30. ACETAMINOPHEN [Suspect]
     Active Substance: ACETAMINOPHEN
     Indication: Pain in extremity
     Dosage: 1000 MILLIGRAM, 3 TIMES A DAY
     Route: 065
  31. ACETAMINOPHEN [Suspect]
     Active Substance: ACETAMINOPHEN
     Indication: Neuralgia
  32. ACETAMINOPHEN [Suspect]
     Active Substance: ACETAMINOPHEN
     Indication: Neck pain
  33. QUETIAPINE [Concomitant]
     Active Substance: QUETIAPINE
     Indication: Screaming
     Dosage: 12.5 MILLIGRAM
     Route: 048
  34. QUETIAPINE [Concomitant]
     Active Substance: QUETIAPINE
     Dosage: 25 MILLIGRAM
     Route: 048

REACTIONS (7)
  - Confusional state [Recovered/Resolved]
  - Sedation [Recovered/Resolved]
  - Delirium [Recovered/Resolved]
  - Pain [Recovered/Resolved]
  - Drug ineffective for unapproved indication [Recovered/Resolved]
  - Drug ineffective [Unknown]
  - Therapeutic product effect incomplete [Unknown]
